FAERS Safety Report 9157786 (Version 7)
Quarter: 2014Q3

REPORT INFORMATION
  Report Type: Spontaneous
  Country: US (occurrence: US)
  Receive Date: 20130312
  Receipt Date: 20140718
  Transmission Date: 20150326
  Serious: Yes (Hospitalization, Other)
  Sender: FDA-Public Use
  Company Number: US-009507513-1303USA003983

PATIENT
  Sex: Female
  Weight: 62.13 kg

DRUGS (4)
  1. ALENDRONATE SODIUM. [Suspect]
     Active Substance: ALENDRONATE SODIUM
     Indication: OSTEOPOROSIS
     Dosage: 70 MG, UNK
     Route: 048
     Dates: start: 20100113, end: 20100513
  2. FOSAMAX [Suspect]
     Active Substance: ALENDRONATE SODIUM
     Indication: OSTEOPENIA
     Dosage: 70 MG, QW
     Route: 048
  3. CALCIUM (UNSPECIFIED) (+) VITAMIN D (UNSPECIFIED) [Concomitant]
     Active Substance: CALCIUM CARBONATE\VITAMIN D
     Dosage: 600 MG/400 IU
     Dates: start: 1998
  4. VITAMINS (UNSPECIFIED) [Concomitant]
     Active Substance: VITAMINS
     Dosage: ONE DAILY
     Dates: start: 1998

REACTIONS (41)
  - Haemorrhagic anaemia [Recovering/Resolving]
  - Surgery [Unknown]
  - Foot operation [Unknown]
  - Agitation [Unknown]
  - Vascular dementia [Unknown]
  - Complex partial seizures [Unknown]
  - Spinal compression fracture [Unknown]
  - Spinal compression fracture [Recovered/Resolved]
  - Gastrooesophageal reflux disease [Unknown]
  - Hypertension [Unknown]
  - Adverse event [Unknown]
  - Hypothyroidism [Unknown]
  - Depression [Unknown]
  - Osteoarthritis [Unknown]
  - Transient ischaemic attack [Unknown]
  - Dementia Alzheimer^s type [Unknown]
  - Drug intolerance [Unknown]
  - Confusional state [Unknown]
  - Blood cholesterol increased [Unknown]
  - Fall [Unknown]
  - Balance disorder [Unknown]
  - Femur fracture [Unknown]
  - Low turnover osteopathy [Unknown]
  - Vitamin D deficiency [Unknown]
  - Contusion [Unknown]
  - Arthralgia [Unknown]
  - Intramedullary rod insertion [Unknown]
  - Intramedullary rod insertion [Unknown]
  - Hypertonic bladder [Unknown]
  - Oral surgery [Unknown]
  - Exostosis [Unknown]
  - Cerumen impaction [Recovering/Resolving]
  - Cardiac disorder [Unknown]
  - Carotid artery disease [Unknown]
  - Haematocrit decreased [Recovering/Resolving]
  - Fall [Unknown]
  - Pollakiuria [Unknown]
  - Femur fracture [Unknown]
  - Fall [Unknown]
  - Confusional state [Unknown]
  - Urinary incontinence [Unknown]

NARRATIVE: CASE EVENT DATE: 2003
